FAERS Safety Report 4478914-6 (Version None)
Quarter: 2004Q4

REPORT INFORMATION
  Report Type: 
  Country: None (occurrence: None)
  Receive Date: 20041018
  Receipt Date: 20041001
  Transmission Date: 20050328
  Serious: Yes (Other)
  Sender: FDA-Public Use
  Company Number: 2004AL000445

PATIENT
  Age: 87 Year
  Sex: Male

DRUGS (1)
  1. METOCLOPRAMIDE [Suspect]
     Dosage: 5 MG; QID;

REACTIONS (6)
  - ANOREXIA [None]
  - EXTREMITY CONTRACTURE [None]
  - FAILURE TO THRIVE [None]
  - INCONTINENCE [None]
  - MUSCLE RIGIDITY [None]
  - TREMOR [None]
